FAERS Safety Report 20721215 (Version 1)
Quarter: 2022Q2

REPORT INFORMATION
  Report Type: Spontaneous
  Country: US (occurrence: None)
  Receive Date: 20220418
  Receipt Date: 20220418
  Transmission Date: 20220721
  Serious: Yes (Death)
  Sender: FDA-Public Use
  Company Number: None

PATIENT
  Age: 82 Year
  Sex: Male

DRUGS (1)
  1. REVLIMID [Suspect]
     Active Substance: LENALIDOMIDE
     Indication: Plasma cell myeloma
     Dosage: OTHER FREQUENCY : QDX14/21D;?
     Route: 048
     Dates: start: 20210318, end: 20220128

REACTIONS (6)
  - Rectal cancer [None]
  - COVID-19 [None]
  - Acute respiratory distress syndrome [None]
  - Oxygen saturation decreased [None]
  - Impaired quality of life [None]
  - Renal impairment [None]

NARRATIVE: CASE EVENT DATE: 20220129
